FAERS Safety Report 4728514-5 (Version None)
Quarter: 2005Q3

REPORT INFORMATION
  Report Type: 
  Country: None (occurrence: None)
  Receive Date: 20050729
  Receipt Date: 20050330
  Transmission Date: 20060218
  Serious: No
  Sender: FDA-Public Use
  Company Number: DSA_24429_2004

PATIENT
  Age: 63 Year
  Sex: Male
  Weight: 92.3 kg

DRUGS (2)
  1. ZANTAC [Suspect]
     Route: 048
     Dates: start: 19950101, end: 19950201
  2. VASOTEC RPD [Suspect]
     Indication: HYPERTENSION
     Dosage: 10MG PER DAY
     Route: 048
     Dates: start: 19950201

REACTIONS (2)
  - HAIR TEXTURE ABNORMAL [None]
  - HYPOTRICHOSIS [None]
